FAERS Safety Report 9589131 (Version 1)
Quarter: 2013Q4

REPORT INFORMATION
  Report Type: Spontaneous
  Country: US (occurrence: US)
  Receive Date: 20131003
  Receipt Date: 20131003
  Transmission Date: 20140711
  Serious: No
  Sender: FDA-Public Use
  Company Number: US-AMGEN-USASP2012069094

PATIENT
  Sex: Female
  Weight: 183 kg

DRUGS (12)
  1. ENBREL [Suspect]
     Indication: RHEUMATOID ARTHRITIS
     Dosage: 50 MG, QWK
     Route: 058
  2. METHOTREXATE [Concomitant]
     Dosage: 2.5 MG, UNK
  3. JANUMET [Concomitant]
     Dosage: 50-1000 UNK, UNK
  4. SIMVASTATIN [Concomitant]
     Dosage: 10 MG, UNK
  5. BENICAR [Concomitant]
     Dosage: 20 MG, UNK
  6. ATENOLOL [Concomitant]
     Dosage: 25 MG, UNK
  7. FORTEO [Concomitant]
     Dosage: 600/2.4 SOL UNK, UNK
  8. B COMPLEX B12 [Concomitant]
     Dosage: TR UNK
  9. IRON [Concomitant]
     Dosage: 100 PLUS UNK, UNK
  10. RESTASIS [Concomitant]
     Dosage: 0.05 %, EMU UNK
  11. CYMBALTA [Concomitant]
     Dosage: 20 MG, UNK
  12. LYRICA [Concomitant]
     Dosage: 25 MG, UNK

REACTIONS (3)
  - Urinary tract infection [Unknown]
  - Injection site bruising [Unknown]
  - Injection site pain [Unknown]
